FAERS Safety Report 4427686-X (Version None)
Quarter: 2004Q3

REPORT INFORMATION
  Report Type: 
  Country: None (occurrence: None)
  Receive Date: 20040812
  Receipt Date: 20040730
  Transmission Date: 20050211
  Serious: Yes (Death, Other)
  Sender: FDA-Public Use
  Company Number: 2004036289

PATIENT
  Age: 74 Year
  Sex: Male
  Weight: 92.9874 kg

DRUGS (5)
  1. VIAGRA [Suspect]
     Indication: ERECTILE DYSFUNCTION
     Dosage: 50 MG, PRN, ORAL
     Route: 048
     Dates: start: 20040401, end: 20040527
  2. SOTALOL HCL [Suspect]
     Indication: ATRIAL FIBRILLATION
     Dosage: 160 MG (80 MG, 2 IN 1 D, ORAL
     Route: 048
  3. PANTOPRAZOLE (PANTOPRAZOLE) [Concomitant]
  4. ASPIRIN [Concomitant]
  5. ROFECOXIB [Concomitant]

REACTIONS (5)
  - ATRIAL FIBRILLATION [None]
  - COMA [None]
  - DISEASE RECURRENCE [None]
  - DRUG INTERACTION [None]
  - DYSPNOEA [None]
